FAERS Safety Report 16007700 (Version 1)
Quarter: 2019Q1

REPORT INFORMATION
  Report Type: Spontaneous
  Country: FR (occurrence: FR)
  Receive Date: 20190226
  Receipt Date: 20190226
  Transmission Date: 20190418
  Serious: Yes (Hospitalization)
  Sender: FDA-Public Use
  Company Number: FR-TEVA-2019-FR-1015342

PATIENT
  Age: 74 Year
  Sex: Male

DRUGS (4)
  1. LASILIX FAIBLE 20 MG, COMPRIM? [Suspect]
     Active Substance: FUROSEMIDE
     Dosage: 1 DOSAGE FORMS DAILY;
     Route: 048
     Dates: start: 20190108, end: 20190113
  2. PREVISCAN 20 MG, COMPRIM? S?CABLE [Suspect]
     Active Substance: FLUINDIONE
     Dosage: 15MG 3 DAYS A WEEK, 20MG 4DAYS A WEEK
     Route: 048
     Dates: start: 20190108, end: 20190113
  3. BISOPROLOL ACTAVIS 5 MG, COMPRIM? S?CABLE [Suspect]
     Active Substance: BISOPROLOL FUMARATE
     Dosage: 1 DOSAGE FORMS DAILY;
     Route: 048
     Dates: start: 20190108, end: 20190113
  4. MOPRAL 20 MG, MICROGRANULES GASTROR?SISTANTS EN G?LULE [Suspect]
     Active Substance: OMEPRAZOLE MAGNESIUM
     Dosage: 1 DOSAGE FORMS DAILY;
     Route: 048
     Dates: start: 20190108, end: 20190113

REACTIONS (4)
  - International normalised ratio increased [Recovered/Resolved]
  - Chest pain [Recovered/Resolved]
  - Palpitations [Recovered/Resolved]
  - Bradycardia [Recovered/Resolved]

NARRATIVE: CASE EVENT DATE: 20190113
